FAERS Safety Report 9099781 (Version 3)
Quarter: 2013Q2

REPORT INFORMATION
  Report Type: Spontaneous
  Country: US (occurrence: US)
  Receive Date: 20130214
  Receipt Date: 20130415
  Transmission Date: 20140414
  Serious: Yes (Other)
  Sender: FDA-Public Use
  Company Number: US-JNJFOC-20130205027

PATIENT
  Sex: Female
  Weight: 68.04 kg

DRUGS (1)
  1. EXTRA STRENGTH TYLENOL PM [Suspect]
     Indication: PAIN
     Route: 048

REACTIONS (5)
  - Hallucination [Recovered/Resolved]
  - Feeling abnormal [Recovered/Resolved]
  - Agitation [Recovered/Resolved]
  - Insomnia [Recovered/Resolved]
  - Nightmare [Recovered/Resolved]
